FAERS Safety Report 13162152 (Version 2)
Quarter: 2021Q2

REPORT INFORMATION
  Report Type: Spontaneous
  Country: US (occurrence: US)
  Receive Date: 20170130
  Receipt Date: 20210503
  Transmission Date: 20210716
  Serious: No
  Sender: FDA-Public Use
  Company Number: US-PFIZER INC-2017040323

PATIENT
  Age: 77 Year
  Sex: Female

DRUGS (11)
  1. CARBIDOPA. [Suspect]
     Active Substance: CARBIDOPA
     Dosage: UNK
  2. LEFLUNOMIDE. [Suspect]
     Active Substance: LEFLUNOMIDE
     Dosage: UNK
  3. TRAZODONE [Suspect]
     Active Substance: TRAZODONE HYDROCHLORIDE
     Dosage: UNK
  4. FOSAMAX [Suspect]
     Active Substance: ALENDRONATE SODIUM
     Dosage: UNK
  5. SULFASALAZINE. [Suspect]
     Active Substance: SULFASALAZINE
     Dosage: UNK
  6. LEVODOPA [Suspect]
     Active Substance: LEVODOPA
     Dosage: UNK
  7. ROPINIROLE. [Suspect]
     Active Substance: ROPINIROLE
     Dosage: UNK
  8. METHOTREXATE SODIUM. [Suspect]
     Active Substance: METHOTREXATE SODIUM
     Dosage: UNK
  9. DULOXETINE. [Suspect]
     Active Substance: DULOXETINE
     Dosage: UNK
  10. KLONOPIN [Suspect]
     Active Substance: CLONAZEPAM
     Dosage: UNK
  11. HEPARIN SODIUM. [Suspect]
     Active Substance: HEPARIN SODIUM
     Dosage: UNK

REACTIONS (1)
  - Drug hypersensitivity [Unknown]
